FAERS Safety Report 20945244 (Version 1)
Quarter: 2022Q2

REPORT INFORMATION
  Report Type: Spontaneous
  Country: US (occurrence: None)
  Receive Date: 20220609
  Receipt Date: 20220609
  Transmission Date: 20220720
  Serious: Yes (Other)
  Sender: FDA-Public Use
  Company Number: None

PATIENT
  Age: 64 Year
  Sex: Female
  Weight: 51.75 kg

DRUGS (7)
  1. PRAVASTATIN SODIUM [Suspect]
     Active Substance: PRAVASTATIN SODIUM
     Indication: Blood cholesterol increased
     Dosage: OTHER QUANTITY : 1 TABLET(S);?FREQUENCY : DAILY;?
     Route: 048
  2. METOPROLOL [Concomitant]
  3. DIOVAN [Concomitant]
     Active Substance: VALSARTAN
  4. RITALIN [Concomitant]
     Active Substance: METHYLPHENIDATE HYDROCHLORIDE
  5. ADDERALL [Concomitant]
  6. MODAFINIL [Concomitant]
  7. CO Q 10 [Concomitant]

REACTIONS (6)
  - Myalgia [None]
  - Arthralgia [None]
  - Loss of personal independence in daily activities [None]
  - Impaired driving ability [None]
  - Sleep disorder [None]
  - Arthralgia [None]

NARRATIVE: CASE EVENT DATE: 20220202
